FAERS Safety Report 20933409 (Version 3)
Quarter: 2022Q3

REPORT INFORMATION
  Report Type: Spontaneous
  Country: US (occurrence: US)
  Receive Date: 20220608
  Receipt Date: 20220808
  Transmission Date: 20221027
  Serious: Yes (Hospitalization, Other)
  Sender: FDA-Public Use
  Company Number: US-BRISTOL-MYERS SQUIBB COMPANY-2022-051149

PATIENT
  Age: 54 Year
  Sex: Male

DRUGS (2)
  1. ORENCIA [Suspect]
     Active Substance: ABATACEPT
     Indication: Rheumatoid arthritis
     Dosage: ONGOING?EXPIRATION DATE: 30-NOV-2023
     Route: 058
     Dates: start: 20220211
  2. ORENCIA [Suspect]
     Active Substance: ABATACEPT
     Dosage: EVERY WEEK
     Route: 058
     Dates: start: 202111, end: 202208

REACTIONS (5)
  - Arthropathy [Unknown]
  - Pain [Unknown]
  - Injection site pain [Unknown]
  - Rheumatoid arthritis [Unknown]
  - Liver function test increased [Unknown]
